FAERS Safety Report 9678022 (Version 1)
Quarter: 2013Q4

REPORT INFORMATION
  Report Type: Spontaneous
  Country: DE (occurrence: DE)
  Receive Date: 20131108
  Receipt Date: 20131108
  Transmission Date: 20140711
  Serious: Yes (Other)
  Sender: FDA-Public Use
  Company Number: DE-ROCHE-1297955

PATIENT
  Age: 48 Year
  Sex: Female

DRUGS (4)
  1. ZELBORAF [Suspect]
     Indication: METASTATIC MALIGNANT MELANOMA
     Dosage: 4X240MG EVERY TWO DAYS
     Route: 048
     Dates: start: 20130916, end: 20131009
  2. METOCLOPRAMID [Concomitant]
     Indication: PREMEDICATION
     Route: 048
     Dates: start: 20131004
  3. TRAMADOL [Concomitant]
     Indication: METASTATIC PAIN
     Route: 048
     Dates: start: 20131004
  4. PREDNISOLONE [Concomitant]
     Indication: METASTATIC PAIN
     Route: 048
     Dates: start: 20130828

REACTIONS (1)
  - Drug reaction with eosinophilia and systemic symptoms [Recovering/Resolving]
